FAERS Safety Report 9295547 (Version 3)
Quarter: 2013Q3

REPORT INFORMATION
  Report Type: Spontaneous
  Country: US (occurrence: US)
  Receive Date: 20130517
  Receipt Date: 20130703
  Transmission Date: 20140515
  Serious: Yes (Disabling, Other)
  Sender: FDA-Public Use
  Company Number: US-GLAXOSMITHKLINE-A1023568A

PATIENT
  Age: 62 Year
  Sex: Female
  Weight: 94.1 kg

DRUGS (10)
  1. BENLYSTA [Suspect]
     Indication: SYSTEMIC LUPUS ERYTHEMATOSUS
     Dosage: 920MG CYCLIC
     Route: 042
     Dates: start: 20120522, end: 20130507
  2. PLAQUENIL [Concomitant]
     Dosage: 200MG PER DAY
     Route: 048
  3. FOLIC ACID [Concomitant]
     Dosage: 1MG PER DAY
     Route: 048
  4. OXYBUTYNIN [Concomitant]
     Dosage: 5MG TWICE PER DAY
     Route: 048
  5. CRESTOR [Concomitant]
     Dosage: 40MG PER DAY
     Route: 048
  6. LEVOTHYROXIN [Concomitant]
     Dosage: 137MCG PER DAY
     Route: 048
  7. REMERON [Concomitant]
     Route: 048
  8. ADVAIR [Concomitant]
  9. ALBUTEROL [Concomitant]
  10. HYDROXYCHLOROQUINE [Concomitant]
     Dosage: 100MG PER DAY

REACTIONS (15)
  - Systemic lupus erythematosus [Recovering/Resolving]
  - Hypersensitivity [Recovering/Resolving]
  - Drug specific antibody present [Unknown]
  - Viral infection [Recovering/Resolving]
  - Viral rash [Recovering/Resolving]
  - Pyrexia [Recovered/Resolved]
  - Rash erythematous [Recovering/Resolving]
  - Rash maculo-papular [Recovering/Resolving]
  - Rash vesicular [Recovering/Resolving]
  - Mouth ulceration [Recovering/Resolving]
  - Lip ulceration [Recovering/Resolving]
  - Arthralgia [Recovering/Resolving]
  - Myalgia [Recovering/Resolving]
  - Chills [Recovering/Resolving]
  - Stevens-Johnson syndrome [Recovering/Resolving]
